FAERS Safety Report 8939445 (Version 1)
Quarter: 2012Q4

REPORT INFORMATION
  Report Type: Report from Study
  Country: DE (occurrence: DE)
  Receive Date: 20121203
  Receipt Date: 20121203
  Transmission Date: 20130627
  Serious: Yes (Death)
  Sender: FDA-Public Use
  Company Number: DE-BRISTOL-MYERS SQUIBB COMPANY-16901456

PATIENT
  Age: 59 Year
  Sex: Male

DRUGS (11)
  1. CARBOPLATIN [Suspect]
     Indication: NON-SMALL CELL LUNG CANCER
     Dosage: 1DF: AUC5 on day 1 in all 3 wks(5 df)
Last received:30Jul12:AUC4
     Route: 065
     Dates: start: 20120618
  2. GEMCITABINE HCL [Suspect]
     Indication: NON-SMALL CELL LUNG CANCER
     Dosage: 1000mg/m2 on Day 1 and 8
Last dose: On 06aug12:750mg/m2
     Route: 042
     Dates: start: 20120618
  3. FOLIC ACID [Concomitant]
     Dates: start: 201206
  4. DEXAMETHASONE [Concomitant]
     Dates: start: 20120618, end: 20120806
  5. CLEXANE [Concomitant]
     Dates: start: 201206
  6. RAMIPRIL [Concomitant]
     Dates: start: 2010
  7. METOPROLOL [Concomitant]
     Dates: start: 2002
  8. AMLODIPINE [Concomitant]
     Dates: start: 2008
  9. VIANI [Concomitant]
     Dates: start: 2012
  10. MORPHINE [Concomitant]
     Dates: start: 2012
  11. VITAMIN B12 [Concomitant]
     Dates: start: 201206

REACTIONS (1)
  - Death [Fatal]
